FAERS Safety Report 8106951-9 (Version None)
Quarter: 2011Q4

REPORT INFORMATION
  Report Type: 
  Country: None (occurrence: None)
  Receive Date: 20111223
  Receipt Date: 20110713
  Transmission Date: 20120403
  Serious: Yes (Hospitalization)
  Sender: FDA-Public Use
  Company Number: PHHY2011US63264

PATIENT
  Age: 29 Year
  Sex: Female

DRUGS (1)
  1. RITALIN [Suspect]

REACTIONS (2)
  - HALLUCINATION [None]
  - FEELING ABNORMAL [None]
